FAERS Safety Report 9519237 (Version 1)
Quarter: 2013Q3

REPORT INFORMATION
  Report Type: Spontaneous
  Country: US (occurrence: US)
  Receive Date: 20130912
  Receipt Date: 20130912
  Transmission Date: 20140515
  Serious: No
  Sender: FDA-Public Use
  Company Number: US-009507513-1309USA003971

PATIENT
  Sex: Female

DRUGS (1)
  1. NASONEX [Suspect]
     Indication: SEASONAL ALLERGY
     Dosage: 2 DF, ONE SPRAY IN EACH NOSTRIL, QD
     Route: 045

REACTIONS (2)
  - Drug dose omission [Unknown]
  - Product quality issue [Unknown]
